FAERS Safety Report 6349434-9 (Version None)
Quarter: 2009Q3

REPORT INFORMATION
  Report Type: 
  Country: None (occurrence: None)
  Receive Date: 20090911
  Receipt Date: 20090902
  Transmission Date: 20100115
  Serious: Yes (Death, Hospitalization)
  Sender: FDA-Public Use
  Company Number: US-BRISTOL-MYERS SQUIBB COMPANY-14772123

PATIENT
  Age: 53 Year
  Sex: Male
  Weight: 69 kg

DRUGS (21)
  1. ZERIT [Suspect]
     Indication: HIV INFECTION
     Route: 048
     Dates: start: 20060522, end: 20071017
  2. RALTEGRAVIR [Suspect]
     Indication: HIV INFECTION
     Dosage: 22MAY06-20NOV06 21NOV06-06DEC07(381D) 12AUG07,08DEC-21DEC07:14D 23DEC07-09JAN08:18D 11JAN08-ONG
     Route: 048
     Dates: start: 20060522
  3. DARUNAVIR [Suspect]
     Indication: HIV INFECTION
     Dosage: DARUNAVIR TABS, 600MG; 2 TAB
     Route: 048
     Dates: start: 20060522
  4. ENFUVIRTIDE [Suspect]
     Indication: HIV INFECTION
     Dosage: INJECTION
     Route: 058
     Dates: start: 20060522, end: 20070703
  5. ETRAVIRINE [Suspect]
     Indication: HIV INFECTION
     Dosage: 2 DF = 2 TABS(100MG TABS)
     Route: 048
     Dates: start: 20070703
  6. RITONAVIR [Suspect]
     Indication: HIV INFECTION
     Dosage: CAPSULE
     Route: 048
     Dates: start: 20060522
  7. EPIVIR [Suspect]
     Indication: HIV INFECTION
     Dosage: TABS
     Route: 048
     Dates: start: 20060522, end: 20071017
  8. ABACAVIR + LAMIVUDINE [Suspect]
     Dates: start: 20071018
  9. FENTANYL [Suspect]
  10. ACTOS [Concomitant]
     Dates: start: 20061129
  11. CRESTOR [Concomitant]
     Dates: start: 20070801
  12. LIPRAM [Concomitant]
     Dosage: LIPRAM PN20
     Dates: start: 20051115
  13. PROCRIT [Concomitant]
     Dates: start: 20070220, end: 20070916
  14. SEPTRA DS [Concomitant]
     Dates: start: 19960701, end: 20070916
  15. STARLIX [Concomitant]
     Dates: start: 20070601
  16. VALTREX [Concomitant]
     Dates: start: 20051101
  17. FLUCONAZOLE [Concomitant]
     Dates: start: 19960701
  18. LISINOPRIL [Concomitant]
     Dates: start: 20070101
  19. RANITIDINE [Concomitant]
     Dates: start: 20040701
  20. TESTOSTERONE [Concomitant]
     Dates: start: 19980701
  21. VITAMINS NOS [Concomitant]
     Dates: start: 19900701

REACTIONS (2)
  - DRUG HYPERSENSITIVITY [None]
  - SQUAMOUS CELL CARCINOMA [None]
